FAERS Safety Report 26125966 (Version 1)
Quarter: 2025Q4

REPORT INFORMATION
  Report Type: Spontaneous
  Country: EU (occurrence: EU)
  Receive Date: 20251205
  Receipt Date: 20251205
  Transmission Date: 20260118
  Serious: Yes (Hospitalization, Other)
  Sender: GILEAD
  Company Number: EU-GILEAD-2025-0739133

PATIENT
  Age: 61 Year
  Sex: Female

DRUGS (5)
  1. LIVDELZI [Suspect]
     Active Substance: SELADELPAR LYSINE
     Indication: Primary biliary cholangitis
     Dosage: UNK
     Route: 065
  2. LIVDELZI [Suspect]
     Active Substance: SELADELPAR LYSINE
     Indication: Pruritus
  3. LIVDELZI [Suspect]
     Active Substance: SELADELPAR LYSINE
     Indication: Biliary fibrosis
  4. IBUPROFEN [Concomitant]
     Active Substance: IBUPROFEN
     Indication: Infection
  5. AMOXICILLIN [Concomitant]
     Active Substance: AMOXICILLIN
     Indication: Infection

REACTIONS (2)
  - Small intestinal perforation [Not Recovered/Not Resolved]
  - Infection [Unknown]

NARRATIVE: CASE EVENT DATE: 20251001
